FAERS Safety Report 16821750 (Version 1)
Quarter: 2019Q3

REPORT INFORMATION
  Report Type: Spontaneous
  Country: US (occurrence: US)
  Receive Date: 20190726
  Receipt Date: 20190726
  Transmission Date: 20191005
  Serious: No
  Sender: FDA-Public Use
  Company Number: None

PATIENT
  Age: 27 Year
  Sex: Female

DRUGS (1)
  1. AMBRISENTAN TAB 10MG [Suspect]
     Active Substance: AMBRISENTAN
     Indication: PULMONARY HYPERTENSION
     Dates: start: 201906, end: 20190726

REACTIONS (4)
  - Dyspnoea [None]
  - Fluid retention [None]
  - Product substitution issue [None]
  - Abdominal distension [None]

NARRATIVE: CASE EVENT DATE: 20190726
